FAERS Safety Report 9484310 (Version 1)
Quarter: 2013Q3

REPORT INFORMATION
  Report Type: Spontaneous
  Country: US (occurrence: US)
  Receive Date: 20130828
  Receipt Date: 20130828
  Transmission Date: 20140515
  Serious: Yes (Other)
  Sender: FDA-Public Use
  Company Number: US-AMGEN-KDL406421

PATIENT
  Age: 36 Year
  Sex: Female

DRUGS (3)
  1. ENBREL [Suspect]
     Indication: RHEUMATOID ARTHRITIS
     Dosage: 50 MG, QWK
     Route: 058
     Dates: start: 20090606
  2. HYDROXYCHLOROQUINE [Concomitant]
     Dosage: 200 MG, BID
     Route: 048
  3. METHOTREXATE [Concomitant]
     Dosage: 10 MG, QWK
     Route: 048

REACTIONS (7)
  - Systemic lupus erythematosus [Not Recovered/Not Resolved]
  - Coccidioidomycosis [Recovered/Resolved]
  - Candida infection [Recovered/Resolved]
  - Pneumonia [Unknown]
  - Herpes zoster [Recovered/Resolved]
  - Staphylococcal skin infection [Recovered/Resolved]
  - Chest pain [Not Recovered/Not Resolved]
